FAERS Safety Report 13243804 (Version 2)
Quarter: 2017Q1

REPORT INFORMATION
  Report Type: Spontaneous
  Country: US (occurrence: US)
  Receive Date: 20170216
  Receipt Date: 20170301
  Transmission Date: 20170428
  Serious: Yes (Other)
  Sender: FDA-Public Use
  Company Number: US-JAZZ-2017-US-001013

PATIENT
  Sex: Male

DRUGS (18)
  1. SKELAXIN [Concomitant]
     Active Substance: METAXALONE
  2. ZETIA [Concomitant]
     Active Substance: EZETIMIBE
  3. ENABLEX [Concomitant]
     Active Substance: DARIFENACIN HYDROBROMIDE
  4. GABAPENTIN. [Concomitant]
     Active Substance: GABAPENTIN
  5. XYREM [Suspect]
     Active Substance: SODIUM OXYBATE
     Indication: NARCOLEPSY
     Dosage: 2G, BID
     Route: 048
     Dates: start: 201312, end: 2013
  6. CRESTOR [Concomitant]
     Active Substance: ROSUVASTATIN CALCIUM
  7. TERBINAFINE HCL [Concomitant]
     Active Substance: TERBINAFINE HYDROCHLORIDE
  8. PROPRANOLOL [Concomitant]
     Active Substance: PROPRANOLOL HYDROCHLORIDE
  9. NORDITROPIN [Concomitant]
     Active Substance: SOMATROPIN
  10. PREVACID [Concomitant]
     Active Substance: LANSOPRAZOLE
  11. MELATONIN [Concomitant]
     Active Substance: MELATONIN
  12. PROTONIX                           /00661201/ [Concomitant]
     Active Substance: OMEPRAZOLE
  13. VITAMIN D                          /00107901/ [Concomitant]
     Active Substance: ERGOCALCIFEROL
  14. XYREM [Suspect]
     Active Substance: SODIUM OXYBATE
     Dosage: 2.25G, BID
     Route: 048
     Dates: start: 201401, end: 2014
  15. XYREM [Suspect]
     Active Substance: SODIUM OXYBATE
     Dosage: 4.5G, BID
     Route: 048
     Dates: start: 201403
  16. PROAIR HFA [Concomitant]
     Active Substance: ALBUTEROL SULFATE
  17. CICLOPIROX. [Concomitant]
     Active Substance: CICLOPIROX
  18. ZOFRAN [Concomitant]
     Active Substance: ONDANSETRON HYDROCHLORIDE

REACTIONS (6)
  - Autonomic nervous system imbalance [Unknown]
  - Back pain [Not Recovered/Not Resolved]
  - Memory impairment [Not Recovered/Not Resolved]
  - Nausea [Not Recovered/Not Resolved]
  - Hip arthroplasty [Unknown]
  - Back disorder [Not Recovered/Not Resolved]

NARRATIVE: CASE EVENT DATE: 2015
